FAERS Safety Report 5683425-6 (Version None)
Quarter: 2008Q1

REPORT INFORMATION
  Report Type: 
  Country: None (occurrence: None)
  Receive Date: 20080326
  Receipt Date: 20080313
  Transmission Date: 20080703
  Serious: Yes (Hospitalization)
  Sender: FDA-Public Use
  Company Number: US021681

PATIENT
  Age: 29 Year
  Sex: Female
  Weight: 47.6277 kg

DRUGS (8)
  1. PROVIGIL [Suspect]
     Indication: HYPERSOMNIA
     Dosage: 200 MG QD ORAL
     Route: 048
     Dates: start: 20071016, end: 20071029
  2. PROVIGIL [Suspect]
     Indication: HYPERSOMNIA
     Dosage: 400 MG QD ORAL
     Route: 048
     Dates: start: 20071030, end: 20071106
  3. LASIX [Suspect]
     Indication: OEDEMA
     Dates: start: 20071101, end: 20071101
  4. REGLAN [Suspect]
  5. SKELAXIN [Concomitant]
  6. PROZAC [Concomitant]
  7. WELLBUTRIN [Concomitant]
  8. MULTI-VITAMIN [Concomitant]

REACTIONS (30)
  - ALANINE AMINOTRANSFERASE INCREASED [None]
  - ARTHRALGIA [None]
  - ASPARTATE AMINOTRANSFERASE INCREASED [None]
  - BACK PAIN [None]
  - BLOOD ALKALINE PHOSPHATASE INCREASED [None]
  - CHILLS [None]
  - DEHYDRATION [None]
  - DRUG HYPERSENSITIVITY [None]
  - DRUG RASH WITH EOSINOPHILIA AND SYSTEMIC SYMPTOMS [None]
  - DYSKINESIA [None]
  - DYSTONIA [None]
  - EOSINOPHILIA [None]
  - FACE OEDEMA [None]
  - HAEMATOCRIT DECREASED [None]
  - HAEMOGLOBIN DECREASED [None]
  - HEADACHE [None]
  - HEPATIC ENZYME INCREASED [None]
  - HEPATOMEGALY [None]
  - HYPOTENSION [None]
  - LIP EXFOLIATION [None]
  - LYMPHADENOPATHY [None]
  - MUSCLE RIGIDITY [None]
  - MUSCULOSKELETAL STIFFNESS [None]
  - MYALGIA [None]
  - NECK PAIN [None]
  - OEDEMA [None]
  - PLEURAL EFFUSION [None]
  - RASH MORBILLIFORM [None]
  - THERAPEUTIC RESPONSE DECREASED [None]
  - URINE OUTPUT DECREASED [None]
